FAERS Safety Report 18894549 (Version 2)
Quarter: 2021Q1

REPORT INFORMATION
  Report Type: Report from Study
  Country: CO (occurrence: CO)
  Receive Date: 20210215
  Receipt Date: 20210322
  Transmission Date: 20210420
  Serious: Yes (Hospitalization, Other)
  Sender: FDA-Public Use
  Company Number: PHHY2017CO111078

PATIENT
  Age: 62 Year
  Sex: Female
  Weight: 60 kg

DRUGS (5)
  1. JAKAVI [Suspect]
     Active Substance: RUXOLITINIB
     Indication: MYELOFIBROSIS
     Dosage: 5 MG, QID (4 TIMES A DAY)
     Route: 048
     Dates: start: 20170518
  2. JAKAVI [Suspect]
     Active Substance: RUXOLITINIB
     Dosage: 10 MG, Q12H
     Route: 048
     Dates: end: 202012
  3. JAKAVI [Suspect]
     Active Substance: RUXOLITINIB
     Indication: PRIMARY MYELOFIBROSIS
     Dosage: 10 MG, Q12H (STARTED 6 YEARS AGO)
     Route: 048
  4. ENALAPRIL [Concomitant]
     Active Substance: ENALAPRIL
     Indication: HYPERTENSION
     Dosage: 5 MG, QD (STARTED 6 YEARS AGO)
     Route: 048
  5. JAKAVI [Suspect]
     Active Substance: RUXOLITINIB
     Dosage: UNK
     Route: 065

REACTIONS (9)
  - Ulcer [Unknown]
  - Inappropriate schedule of product administration [Unknown]
  - Haematochezia [Recovered/Resolved]
  - Headache [Recovered/Resolved]
  - Diabetes mellitus [Unknown]
  - Haemoglobin decreased [Recovering/Resolving]
  - Haematemesis [Recovered/Resolved]
  - Haematemesis [Recovered/Resolved]
  - Illness [Unknown]

NARRATIVE: CASE EVENT DATE: 20170518
